FAERS Safety Report 18583880 (Version 2)
Quarter: 2020Q4

REPORT INFORMATION
  Report Type: Spontaneous
  Country: AR (occurrence: AR)
  Receive Date: 20201207
  Receipt Date: 20201215
  Transmission Date: 20210114
  Serious: Yes (Other)
  Sender: FDA-Public Use
  Company Number: AR-AMGEN-ARGSP2020197611

PATIENT
  Age: 68 Year
  Sex: Female

DRUGS (1)
  1. ENBREL [Suspect]
     Active Substance: ETANERCEPT
     Indication: RHEUMATOID ARTHRITIS
     Dosage: 50 MILLIGRAM, QWK
     Route: 065
     Dates: start: 20180710

REACTIONS (6)
  - Loss of personal independence in daily activities [Unknown]
  - Hypokinesia [Unknown]
  - Head injury [Unknown]
  - Visual impairment [Unknown]
  - Sensitive skin [Unknown]
  - Limb discomfort [Unknown]

NARRATIVE: CASE EVENT DATE: 202005
